FAERS Safety Report 6224909-1 (Version None)
Quarter: 2009Q2

REPORT INFORMATION
  Report Type: 
  Country: None (occurrence: None)
  Receive Date: 20090612
  Receipt Date: 20090331
  Transmission Date: 20091009
  Serious: No
  Sender: FDA-Public Use
  Company Number: US-ABBOTT-09P-163-0565967-00

PATIENT
  Sex: Female
  Weight: 49.486 kg

DRUGS (5)
  1. HUMIRA [Suspect]
     Indication: CROHN'S DISEASE
     Route: 058
     Dates: start: 20081201
  2. HUMIRA [Suspect]
  3. IMODIUM A-D [Concomitant]
     Indication: DIARRHOEA
     Route: 048
  4. PENTASA [Concomitant]
     Indication: CROHN'S DISEASE
     Route: 048
  5. CIPRO [Concomitant]
     Indication: PROPHYLAXIS
     Route: 048

REACTIONS (5)
  - ANOREXIA [None]
  - CHILLS [None]
  - ERYTHEMA NODOSUM [None]
  - PYREXIA [None]
  - RASH MACULAR [None]
